FAERS Safety Report 7648621-7 (Version None)
Quarter: 2011Q3

REPORT INFORMATION
  Report Type: 
  Country: None (occurrence: None)
  Receive Date: 20110801
  Receipt Date: 20110718
  Transmission Date: 20111222
  Serious: Yes (Other)
  Sender: FDA-Public Use
  Company Number: PHHY2011BR65653

PATIENT
  Age: 76 Year
  Sex: Male

DRUGS (1)
  1. DIOVAN HCT [Suspect]
     Indication: BLOOD PRESSURE MANAGEMENT
     Dosage: 1 DF (160MG VALS AND 12.5MG HYDRO) PER DAY

REACTIONS (3)
  - DIABETES MELLITUS [None]
  - BLOOD PRESSURE INCREASED [None]
  - HYPERTENSION [None]
